FAERS Safety Report 24103118 (Version 2)
Quarter: 2024Q3

REPORT INFORMATION
  Report Type: Report from Study
  Country: US (occurrence: US)
  Receive Date: 20240717
  Receipt Date: 20240718
  Transmission Date: 20241017
  Serious: Yes (Death)
  Sender: ROCHE
  Company Number: US-ROCHE-10000028707

PATIENT
  Age: 64 Year
  Sex: Female

DRUGS (1)
  1. ALECENSA [Suspect]
     Active Substance: ALECTINIB HYDROCHLORIDE
     Indication: Lung neoplasm malignant
     Dosage: TAKE 3 CAPSULE(S) BY MOUTH TWICE A DAY
     Route: 048
     Dates: start: 20191029

REACTIONS (1)
  - Death [Fatal]
